FAERS Safety Report 6764258-6 (Version None)
Quarter: 2010Q2

REPORT INFORMATION
  Report Type: 
  Country: None (occurrence: None)
  Receive Date: 20100608
  Receipt Date: 20100524
  Transmission Date: 20101027
  Serious: Yes (Other)
  Sender: FDA-Public Use
  Company Number: 012364

PATIENT
  Age: 70 Year
  Sex: Female

DRUGS (3)
  1. KEPPRA [Suspect]
     Dosage: ENTRY PERIOD DOSAGE 2000
  2. SODIUM VALPROATE (SODIUM VALPROATE CHRONO) [Suspect]
     Dosage: ENTRY PERIOD TRAETMENT DOSAGE 2000
  3. CLOBAZAM (CLOBAZAM) [Suspect]
     Dosage: ENTRY PERIOD DOSAGE 10

REACTIONS (1)
  - ENCEPHALITIS [None]
